FAERS Safety Report 21518265 (Version 3)
Quarter: 2022Q4

REPORT INFORMATION
  Report Type: Spontaneous
  Country: FR (occurrence: FR)
  Receive Date: 20221028
  Receipt Date: 20221213
  Transmission Date: 20230113
  Serious: Yes (Hospitalization, Other)
  Sender: FDA-Public Use
  Company Number: FR-SA-SAC20221021001036

PATIENT
  Age: 59 Year
  Sex: Female
  Weight: 63 kg

DRUGS (1)
  1. AUBAGIO [Suspect]
     Active Substance: TERIFLUNOMIDE
     Indication: Multiple sclerosis
     Dosage: UNK, QD
     Route: 048
     Dates: start: 20200728

REACTIONS (3)
  - Carcinoma in situ [Unknown]
  - Breast cancer female [Unknown]
  - Breast pain [Unknown]

NARRATIVE: CASE EVENT DATE: 20220101
